FAERS Safety Report 6058812-7 (Version None)
Quarter: 2009Q1

REPORT INFORMATION
  Report Type: 
  Country: None (occurrence: None)
  Receive Date: 20090128
  Receipt Date: 20090128
  Transmission Date: 20090719
  Serious: Yes (Disabling, Other)
  Sender: FDA-Public Use
  Company Number: None

PATIENT
  Age: 32 Year
  Sex: Female
  Weight: 78.0187 kg

DRUGS (1)
  1. MIRENA [Suspect]
     Indication: CONTRACEPTION
     Dosage: 52 MG LEVONORGESTREL 20 G/DAY- INTRA-UTERINE
     Route: 015
     Dates: start: 20080410

REACTIONS (9)
  - ALOPECIA [None]
  - BACK PAIN [None]
  - HYPOAESTHESIA [None]
  - IRRITABILITY [None]
  - OEDEMA [None]
  - PELVIC PAIN [None]
  - TREATMENT FAILURE [None]
  - UTERINE PAIN [None]
  - WEIGHT INCREASED [None]
